FAERS Safety Report 18980695 (Version 2)
Quarter: 2021Q1

REPORT INFORMATION
  Report Type: Other
  Country: ZA (occurrence: ZA)
  Receive Date: 20210308
  Receipt Date: 20210331
  Transmission Date: 20210420
  Serious: Yes (Other)
  Sender: FDA-Public Use
  Company Number: ZA-ROCHE-2714468

PATIENT
  Age: 58 Year
  Sex: Female

DRUGS (2)
  1. MABTHERA [Suspect]
     Active Substance: RITUXIMAB
     Dosage: DAY 1 AND DAY 15
     Route: 042
  2. MABTHERA [Suspect]
     Active Substance: RITUXIMAB
     Indication: RHEUMATOID ARTHRITIS
     Dosage: FREQUENCY: DAY 1 AND DAY 15
     Route: 042

REACTIONS (19)
  - Renal failure [Unknown]
  - Glomerular filtration rate abnormal [Unknown]
  - Synovitis [Unknown]
  - Cardiac failure [Unknown]
  - Hypertension [Unknown]
  - Ill-defined disorder [Unknown]
  - Osteoarthritis [Unknown]
  - Diabetes mellitus inadequate control [Unknown]
  - Blood creatinine increased [Unknown]
  - Fluid retention [Unknown]
  - Arthritis [Unknown]
  - Metabolic disorder [Unknown]
  - Peripheral swelling [Unknown]
  - Chest pain [Unknown]
  - Haemoglobin decreased [Unknown]
  - Renal impairment [Unknown]
  - Diabetes mellitus [Unknown]
  - Cerebrovascular accident [Unknown]
  - Treatment noncompliance [Unknown]

NARRATIVE: CASE EVENT DATE: 202101
